FAERS Safety Report 19467204 (Version 1)
Quarter: 2021Q2

REPORT INFORMATION
  Report Type: Spontaneous
  Country: US (occurrence: US)
  Receive Date: 20210625
  Receipt Date: 20210625
  Transmission Date: 20210717
  Serious: Yes (Hospitalization)
  Sender: FDA-Public Use
  Company Number: None

PATIENT
  Age: 76 Year

DRUGS (7)
  1. ATORVASTATION [Concomitant]
  2. GABAPENTIN. [Concomitant]
     Active Substance: GABAPENTIN
  3. METOPROLOL. [Concomitant]
     Active Substance: METOPROLOL
  4. MULTIVITAMIN [Concomitant]
     Active Substance: VITAMINS
  5. ENBREL [Concomitant]
     Active Substance: ETANERCEPT
  6. ELIQUIS [Concomitant]
     Active Substance: APIXABAN
  7. DOFETILIDE. [Suspect]
     Active Substance: DOFETILIDE
     Indication: PSORIATIC ARTHROPATHY
     Dosage: OTHER FREQUENCY:EVERY 12 HOURS;?
     Route: 048
     Dates: start: 20200708

REACTIONS (1)
  - Cardiac ablation [None]

NARRATIVE: CASE EVENT DATE: 20210624
